FAERS Safety Report 22521943 (Version 2)
Quarter: 2023Q2

REPORT INFORMATION
  Report Type: Report from Study
  Country: EG (occurrence: EG)
  Receive Date: 20230605
  Receipt Date: 20230614
  Transmission Date: 20230722
  Serious: Yes (Death, Life-Threatening, Hospitalization)
  Sender: FDA-Public Use
  Company Number: EG-002147023-NVSC2023EG125317

PATIENT
  Age: 40 Year
  Sex: Female

DRUGS (5)
  1. KISQALI [Suspect]
     Active Substance: RIBOCICLIB
     Indication: Breast cancer metastatic
     Dosage: 3 DOSAGE FORM, QD (FOR 21 DAYS AND 1 WEEK OFF)
     Route: 048
     Dates: start: 20221220, end: 202301
  2. FASLODEX [Concomitant]
     Active Substance: FULVESTRANT
     Indication: Neoplasm
     Dosage: UNK
     Route: 065
  3. GOSERELIN [Concomitant]
     Active Substance: GOSERELIN
     Indication: Neoplasm
     Dosage: UNK
     Route: 065
  4. ANTIFUNGAL [Concomitant]
     Indication: Product used for unknown indication
     Dosage: UNK
     Route: 065
  5. TRAMADOL [Concomitant]
     Active Substance: TRAMADOL
     Indication: Product used for unknown indication
     Dosage: UNK
     Route: 065

REACTIONS (16)
  - Death [Fatal]
  - Hypotension [Unknown]
  - Shock [Unknown]
  - Anaemia [Unknown]
  - Thrombocytopenia [Unknown]
  - Platelet count decreased [Unknown]
  - Bone pain [Unknown]
  - Septic shock [Not Recovered/Not Resolved]
  - Liver disorder [Not Recovered/Not Resolved]
  - Haemoglobin decreased [Unknown]
  - Heart rate irregular [Recovered/Resolved]
  - Electrocardiogram QT prolonged [Recovered/Resolved]
  - Neoplasm progression [Not Recovered/Not Resolved]
  - Abdominal hernia [Not Recovered/Not Resolved]
  - Memory impairment [Unknown]
  - Drug ineffective [Unknown]

NARRATIVE: CASE EVENT DATE: 20230101
